FAERS Safety Report 15238112 (Version 2)
Quarter: 2018Q3

REPORT INFORMATION
  Report Type: Spontaneous
  Country: ES (occurrence: SE)
  Receive Date: 20180803
  Receipt Date: 20180827
  Transmission Date: 20181010
  Serious: Yes (Other)
  Sender: FDA-Public Use
  Company Number: PHHY2018ES005843

PATIENT
  Age: 74 Year
  Sex: Male

DRUGS (12)
  1. ARIPIPRAZOLE. [Interacting]
     Active Substance: ARIPIPRAZOLE
     Indication: PRODUCT USED FOR UNKNOWN INDICATION
     Dosage: UNK
     Route: 065
  2. ALFUZOSIN [Concomitant]
     Active Substance: ALFUZOSIN
     Route: 065
  3. VALPROIC ACID. [Suspect]
     Active Substance: VALPROIC ACID
     Dosage: 1600 MG, UNK
     Route: 065
  4. ALFUZOSIN [Concomitant]
     Active Substance: ALFUZOSIN
     Indication: PRODUCT USED FOR UNKNOWN INDICATION
     Route: 065
  5. FINASTERIDE. [Concomitant]
     Active Substance: FINASTERIDE
     Indication: PRODUCT USED FOR UNKNOWN INDICATION
  6. QUETIAPINE. [Interacting]
     Active Substance: QUETIAPINE
     Dosage: 500 MG, UNK
     Route: 065
  7. VALPROIC ACID. [Interacting]
     Active Substance: VALPROIC ACID
     Indication: PRODUCT USED FOR UNKNOWN INDICATION
     Dosage: 2400 MG, UNK
     Route: 065
  8. QUETIAPINE. [Interacting]
     Active Substance: QUETIAPINE
     Indication: PRODUCT USED FOR UNKNOWN INDICATION
     Dosage: 50 MG, UNK
     Route: 065
  9. LORAZEPAM. [Suspect]
     Active Substance: LORAZEPAM
     Indication: PRODUCT USED FOR UNKNOWN INDICATION
     Route: 065
  10. LITHIUM. [Concomitant]
     Active Substance: LITHIUM
     Indication: PRODUCT USED FOR UNKNOWN INDICATION
  11. FINASTERIDE. [Concomitant]
     Active Substance: FINASTERIDE
     Route: 065
  12. LITHIUM. [Concomitant]
     Active Substance: LITHIUM
     Dosage: UNK
     Route: 065

REACTIONS (7)
  - Coma [Recovered/Resolved]
  - Drug interaction [Recovered/Resolved]
  - Blood thyroid stimulating hormone decreased [Unknown]
  - Altered state of consciousness [Unknown]
  - Dehydration [Unknown]
  - Depressed level of consciousness [Unknown]
  - Parkinsonism [Unknown]
